FAERS Safety Report 6330526-5 (Version None)
Quarter: 2009Q3

REPORT INFORMATION
  Report Type: 
  Country: None (occurrence: None)
  Receive Date: 20090827
  Receipt Date: 20080912
  Transmission Date: 20100115
  Serious: No
  Sender: FDA-Public Use
  Company Number: A0748223A

PATIENT
  Sex: Female

DRUGS (1)
  1. ZOVIRAX [Suspect]
     Indication: HERPES VIRUS INFECTION
     Route: 061

REACTIONS (4)
  - DRUG INEFFECTIVE [None]
  - EXPIRED DRUG ADMINISTERED [None]
  - HERPES VIRUS INFECTION [None]
  - PARAESTHESIA [None]
